FAERS Safety Report 10469240 (Version 1)
Quarter: 2014Q3

REPORT INFORMATION
  Report Type: Spontaneous
  Country: GB (occurrence: None)
  Receive Date: 20140902
  Receipt Date: 20140902
  Transmission Date: 20150326
  Serious: No
  Sender: FDA-Public Use
  Company Number: 2014GMK009932

PATIENT
  Age: 68 Year
  Sex: Female

DRUGS (8)
  1. DOXYCYCLINE. [Concomitant]
     Active Substance: DOXYCYCLINE
  2. FLUTICASONE PROPIONATE (FLUTICASONE PROPIONATE) [Concomitant]
  3. SALBUTAMOL (SALBUTAMOL) [Concomitant]
     Active Substance: ALBUTEROL
  4. SODIUM CROMOGLICATE (CROMOGICATE SODIUM) [Concomitant]
  5. FEXOFENADINE (FEXOFENADINE) [Concomitant]
  6. PREDNISOLONE (PREDNISOLONE) [Concomitant]
     Active Substance: PREDNISOLONE
  7. CLARITHROMYCIN (CLARITHROMYICIN) [Concomitant]
  8. MONTELUKAST [Suspect]
     Active Substance: MONTELUKAST SODIUM
     Indication: PRODUCT USED FOR UNKNOWN INDICATION
     Dates: start: 20140521

REACTIONS (1)
  - Muscle spasms [None]

NARRATIVE: CASE EVENT DATE: 20140523
